FAERS Safety Report 26112576 (Version 1)
Quarter: 2025Q4

REPORT INFORMATION
  Report Type: Spontaneous
  Country: US (occurrence: US)
  Receive Date: 20251202
  Receipt Date: 20251202
  Transmission Date: 20260118
  Serious: Yes (Life-Threatening, Hospitalization, Other)
  Sender: PFIZER
  Company Number: US-PFIZER INC-PV202500138352

PATIENT
  Age: 34 Year
  Sex: Female

DRUGS (2)
  1. CABERGOLINE [Suspect]
     Active Substance: CABERGOLINE
     Indication: Acromegaly
     Dosage: 0.5 MG, 2X/WEEK
     Dates: start: 2018
  2. LANREOTIDE [Concomitant]
     Active Substance: LANREOTIDE
     Indication: Acromegaly
     Dosage: UNK
     Dates: start: 2018

REACTIONS (4)
  - Gambling disorder [Recovered/Resolved]
  - Adrenocortical insufficiency acute [Recovered/Resolved]
  - Off label use [Unknown]
  - Anxiety [Recovered/Resolved]
